FAERS Safety Report 25616691 (Version 2)
Quarter: 2025Q3

REPORT INFORMATION
  Report Type: Spontaneous
  Country: US (occurrence: US)
  Receive Date: 20250729
  Receipt Date: 20250826
  Transmission Date: 20251021
  Serious: No
  Sender: ABBVIE
  Company Number: US-ABBVIE-6383112

PATIENT
  Age: 79 Year
  Sex: Female
  Weight: 59.874 kg

DRUGS (5)
  1. ACTONEL [Suspect]
     Active Substance: RISEDRONATE SODIUM
     Indication: Osteoporosis
     Route: 048
     Dates: start: 20250301, end: 20250401
  2. METHOTREXATE [Concomitant]
     Active Substance: METHOTREXATE
     Indication: Arthritis
  3. SYNTHROID [Concomitant]
     Active Substance: LEVOTHYROXINE SODIUM
     Indication: Hypothyroidism
  4. CALCIUM CARBONATE\CHOLECALCIFEROL [Concomitant]
     Active Substance: CALCIUM CARBONATE\CHOLECALCIFEROL
     Indication: Product used for unknown indication
  5. Lutein Zeaxanthin [Concomitant]
     Indication: Eye disorder

REACTIONS (8)
  - Arthralgia [Recovering/Resolving]
  - Brain fog [Recovering/Resolving]
  - Pain in extremity [Recovering/Resolving]
  - Gait inability [Recovering/Resolving]
  - Stress fracture [Not Recovered/Not Resolved]
  - Fatigue [Recovering/Resolving]
  - Lethargy [Recovered/Resolved]
  - Tooth extraction [Unknown]

NARRATIVE: CASE EVENT DATE: 20250101
